FAERS Safety Report 21000794 (Version 1)
Quarter: 2022Q2

REPORT INFORMATION
  Report Type: Other
  Country: DE (occurrence: DE)
  Receive Date: 20220623
  Receipt Date: 20220623
  Transmission Date: 20220720
  Serious: Yes (Other)
  Sender: FDA-Public Use
  Company Number: DE-CELLTRION INC.-2022DE009488

PATIENT

DRUGS (4)
  1. RITUXIMAB [Suspect]
     Active Substance: RITUXIMAB
     Indication: Product used for unknown indication
     Dosage: R-CHOP, 4 CYCLES, PHARMACEUTICAL DOSE FORM: UNKNOWN
     Route: 065
     Dates: start: 20181217
  2. RITUXIMAB [Suspect]
     Active Substance: RITUXIMAB
     Dosage: R-DHOX, 2 CYCLES, PHARMACEUTICAL DOSE FORM: UNKNOWN
     Route: 065
     Dates: start: 20181127, end: 20181217
  3. PIXANTRONE [Suspect]
     Active Substance: PIXANTRONE
     Indication: Product used for unknown indication
     Dosage: 1 CYCLES
     Route: 065
     Dates: start: 20190109
  4. CYCLOPHOSPHAMIDE\DOXORUBICIN\PREDNISONE\VINCRISTINE [Suspect]
     Active Substance: CYCLOPHOSPHAMIDE\DOXORUBICIN\PREDNISONE\VINCRISTINE
     Indication: Diffuse large B-cell lymphoma
     Dosage: R-CHOP, 4 CYCLES
     Route: 065
     Dates: start: 20181217

REACTIONS (3)
  - Neutropenia [Unknown]
  - Neuropathy peripheral [Unknown]
  - Nausea [Unknown]
